FAERS Safety Report 4268908-8 (Version None)
Quarter: 2004Q1

REPORT INFORMATION
  Report Type: 
  Country: None (occurrence: None)
  Receive Date: 20040112
  Receipt Date: 20040112
  Transmission Date: 20041129
  Serious: Yes (Hospitalization)
  Sender: FDA-Public Use
  Company Number: None

PATIENT
  Age: 47 Year
  Sex: Male

DRUGS (1)
  1. PACLITAXEL [Suspect]
     Indication: LUNG NEOPLASM MALIGNANT
     Dosage: 350 MG X1 INTRAVENOUS
     Route: 042
     Dates: start: 20031210, end: 20031210

REACTIONS (3)
  - BLOOD PRESSURE DECREASED [None]
  - BRADYCARDIA [None]
  - NERVOUS SYSTEM DISORDER [None]
